FAERS Safety Report 8455905-1 (Version None)
Quarter: 2012Q2

REPORT INFORMATION
  Report Type: 
  Country: None (occurrence: None)
  Receive Date: 20120621
  Receipt Date: 20120502
  Transmission Date: 20120825
  Serious: Yes (Other)
  Sender: FDA-Public Use
  Company Number: AT-PFIZER INC-2012144493

PATIENT
  Sex: Male

DRUGS (1)
  1. VIBRAMYCIN [Suspect]
     Indication: MALARIA
     Dosage: 100 MG DAILY

REACTIONS (1)
  - CONVULSION [None]
